FAERS Safety Report 6253798-4 (Version None)
Quarter: 2009Q3

REPORT INFORMATION
  Report Type: 
  Country: None (occurrence: None)
  Receive Date: 20090702
  Receipt Date: 20070628
  Transmission Date: 20100115
  Serious: Yes (Other)
  Sender: FDA-Public Use
  Company Number: US-ASTRAZENECA-2006UW22817

PATIENT
  Age: 55 Year
  Sex: Female
  Weight: 69.4 kg

DRUGS (16)
  1. SEROQUEL [Suspect]
     Indication: DEPRESSION
     Route: 048
     Dates: start: 19990101, end: 20060901
  2. SEROQUEL [Suspect]
     Indication: BIPOLAR DISORDER
     Route: 048
     Dates: start: 19990101, end: 20060901
  3. SEROQUEL [Suspect]
     Indication: SLEEP DISORDER
     Route: 048
     Dates: start: 19990101, end: 20060901
  4. SEROQUEL [Suspect]
     Dosage: 300-900 MG
     Route: 048
     Dates: start: 20000406
  5. SEROQUEL [Suspect]
     Dosage: 300-900 MG
     Route: 048
     Dates: start: 20000406
  6. SEROQUEL [Suspect]
     Dosage: 300-900 MG
     Route: 048
     Dates: start: 20000406
  7. ZYPREXA [Concomitant]
     Dosage: 5-10 MG, DAILY
     Dates: start: 20060621
  8. PRILOSEC [Concomitant]
     Indication: GASTROOESOPHAGEAL REFLUX DISEASE
     Route: 048
     Dates: start: 20000406
  9. PREMARIN [Concomitant]
     Dosage: 1.87-625 MG, DAILY
     Dates: start: 20000406
  10. AMBIEN [Concomitant]
     Indication: INSOMNIA
     Dates: start: 19990601
  11. NORVASC [Concomitant]
     Indication: HYPERTENSION
     Dosage: 5-10 MG, DAILY
     Dates: start: 20040408
  12. LEXAPRO [Concomitant]
     Indication: DEPRESSION
     Dates: start: 20040408
  13. TOPROL-XL [Concomitant]
     Indication: HYPERTENSION
     Dosage: 25-100 MG
     Dates: start: 20040408
  14. PERCOCET [Concomitant]
     Indication: BACK PAIN
     Dosage: STRENGTH 5/325 MG
     Dates: start: 20041026
  15. VICODIN [Concomitant]
     Indication: BACK PAIN
     Dosage: STRENGTH 5/500 MG, ONE TO TWO TAB AT BEDTIME
     Dates: start: 20041026
  16. VALIUM [Concomitant]
     Dosage: 6-40 MG
     Dates: start: 20041026

REACTIONS (3)
  - DIABETES MELLITUS [None]
  - DIABETES MELLITUS INADEQUATE CONTROL [None]
  - NEUROPATHY PERIPHERAL [None]
